FAERS Safety Report 9505369 (Version 1)
Quarter: 2013Q1

REPORT INFORMATION
  Report Type: Spontaneous
  Country: US (occurrence: None)
  Receive Date: 20130220
  Receipt Date: 20130220
  Transmission Date: 20140127
  Serious: No
  Sender: FDA-Public Use
  Company Number: 1000040468

PATIENT
  Age: 70 Year
  Sex: Male

DRUGS (5)
  1. VIIBYRD (VILAZODONE HYDROCHLORIDE) (10 MILLIGRAM, TABLETS) [Suspect]
     Indication: DEPRESSION
     Dosage: 10 MG (10 MG, 1 IN 1 D), ORAL
     Route: 048
     Dates: start: 20121112, end: 20121118
  2. EFFEXOR (VENLAFAXINE HYDROCHLORIDE) UNKNOWN [Suspect]
     Indication: DEPRESSION
     Dosage: 300 MG (300 MG, 1 IN 1 D)
     Dates: start: 20120723, end: 2012
  3. METFORMIN (METFORMIN) (METFORMIN) [Concomitant]
  4. HIGH BLOOD PRESSURE MEDICATIONS (NOS) (HIGH BLOOD PRESSURE MEDICATIONS (NOS) (HIGH BLOOD PRESSURE MEDICATIONS (NOS) [Concomitant]
  5. KLONOPIN [Suspect]

REACTIONS (4)
  - Headache [None]
  - Anxiety [None]
  - Nausea [None]
  - Feeling abnormal [None]
